FAERS Safety Report 23781173 (Version 1)
Quarter: 2024Q2

REPORT INFORMATION
  Report Type: Other
  Country: US (occurrence: None)
  Receive Date: 20240425
  Receipt Date: 20240425
  Transmission Date: 20240716
  Serious: Yes (Death)
  Sender: FDA-Public Use
  Company Number: US-ROCHE-3532039

PATIENT
  Age: 70 Year
  Sex: Male

DRUGS (3)
  1. ESBRIET [Suspect]
     Active Substance: PIRFENIDONE
     Indication: Pulmonary fibrosis
     Route: 065
  2. ESBRIET [Suspect]
     Active Substance: PIRFENIDONE
     Indication: Rheumatoid lung
  3. ESBRIET [Suspect]
     Active Substance: PIRFENIDONE
     Indication: Rheumatoid arthritis

REACTIONS (1)
  - Death [Fatal]
